FAERS Safety Report 7235385-4 (Version None)
Quarter: 2011Q1

REPORT INFORMATION
  Report Type: 
  Country: None (occurrence: None)
  Receive Date: 20110110
  Receipt Date: 20110104
  Transmission Date: 20110831
  Serious: Yes (Other)
  Sender: FDA-Public Use
  Company Number: 024739

PATIENT
  Sex: Male

DRUGS (1)
  1. KEPPRA [Suspect]
     Indication: PROPHYLAXIS
     Dosage: (500 MG BID ORAL)
     Route: 048
     Dates: start: 20100609, end: 20100801

REACTIONS (1)
  - IMPAIRED HEALING [None]
